FAERS Safety Report 6477795-9 (Version None)
Quarter: 2009Q4

REPORT INFORMATION
  Report Type: 
  Country: None (occurrence: None)
  Receive Date: 20091207
  Receipt Date: 20091126
  Transmission Date: 20100525
  Serious: Yes (Hospitalization)
  Sender: FDA-Public Use
  Company Number: CN-JNJFOC-20091200741

PATIENT
  Age: 3 Year
  Sex: Female
  Weight: 14.5 kg

DRUGS (3)
  1. INFANTS' TYLENOL [Suspect]
     Route: 048
  2. INFANTS' TYLENOL [Suspect]
     Indication: PYREXIA
     Route: 048
  3. ACETAMINOPHEN [Suspect]
     Indication: PYREXIA
     Route: 048

REACTIONS (2)
  - DRUG ADMINISTRATION ERROR [None]
  - DRUG HYPERSENSITIVITY [None]
